FAERS Safety Report 12256595 (Version 1)
Quarter: 2016Q2

REPORT INFORMATION
  Report Type: Spontaneous
  Country: US (occurrence: None)
  Receive Date: 20160411
  Receipt Date: 20160411
  Transmission Date: 20160815
  Serious: No
  Sender: FDA-Public Use
  Company Number: None

PATIENT
  Sex: Female

DRUGS (5)
  1. SPRYCEL [Suspect]
     Active Substance: DASATINIB
     Indication: CHRONIC LYMPHOCYTIC LEUKAEMIA
     Route: 048
     Dates: start: 20120612
  2. DETROL [Concomitant]
     Active Substance: TOLTERODINE TARTRATE
  3. LOSARTAN. [Concomitant]
     Active Substance: LOSARTAN
  4. OXYBUTYNIN [Concomitant]
     Active Substance: OXYBUTYNIN
  5. TERBINAFINE. [Concomitant]
     Active Substance: TERBINAFINE

REACTIONS (1)
  - Muscle spasms [None]

NARRATIVE: CASE EVENT DATE: 2016
